FAERS Safety Report 13469354 (Version 1)
Quarter: 2017Q2

REPORT INFORMATION
  Report Type: Spontaneous
  Country: DE (occurrence: DE)
  Receive Date: 20170421
  Receipt Date: 20170421
  Transmission Date: 20170830
  Serious: Yes (Other)
  Sender: FDA-Public Use
  Company Number: DE-IMPAX LABORATORIES, INC-2017-IPXL-00652

PATIENT
  Age: 68 Year
  Sex: Female

DRUGS (1)
  1. ALENDRONATE SODIUM IR [Suspect]
     Active Substance: ALENDRONATE SODIUM
     Indication: OSTEOPOROSIS PROPHYLAXIS
     Dosage: 70 MG, 1 /WEEK
     Route: 048
     Dates: start: 200909, end: 2010

REACTIONS (4)
  - Tooth resorption [Unknown]
  - Osteosclerosis [Unknown]
  - Periodontal destruction [Unknown]
  - Colitis [Unknown]
